FAERS Safety Report 5599277-9 (Version None)
Quarter: 2008Q1

REPORT INFORMATION
  Report Type: 
  Country: None (occurrence: None)
  Receive Date: 20080117
  Receipt Date: 20080104
  Transmission Date: 20080703
  Serious: Yes (Hospitalization, Other)
  Sender: FDA-Public Use
  Company Number: 2007BI006559

PATIENT
  Age: 40 Year
  Sex: Female

DRUGS (8)
  1. AVONEX [Suspect]
     Indication: MULTIPLE SCLEROSIS
     Dosage: 30 UG; QW; IM
     Route: 030
     Dates: start: 20061215, end: 20070308
  2. ALEVE [Concomitant]
  3. COUGH SYRUP [Concomitant]
  4. SUDAFED 12 HOUR [Concomitant]
  5. AIR BORNE [Concomitant]
  6. MULTI-VITAMIN [Concomitant]
  7. FISH OIL [Concomitant]
  8. PRENTAL VITAMIN [Concomitant]

REACTIONS (9)
  - CAESAREAN SECTION [None]
  - CERVICAL INCOMPETENCE [None]
  - CONDITION AGGRAVATED [None]
  - DRUG EXPOSURE DURING PREGNANCY [None]
  - PARANASAL SINUS DISCOMFORT [None]
  - PREMATURE LABOUR [None]
  - PREMATURE RUPTURE OF MEMBRANES [None]
  - SINUS HEADACHE [None]
  - WHITE BLOOD CELL COUNT INCREASED [None]
